FAERS Safety Report 9096188 (Version 1)
Quarter: 2013Q1

REPORT INFORMATION
  Report Type: Spontaneous
  Country: US (occurrence: US)
  Receive Date: 20130207
  Receipt Date: 20130207
  Transmission Date: 20140127
  Serious: No
  Sender: FDA-Public Use
  Company Number: US-BAYER-2013-013449

PATIENT
  Age: 59 Year
  Sex: Female
  Weight: 95.24 kg

DRUGS (3)
  1. ALEVE CAPLET/TABLET,MIDOL EXTENDED RELIEF CAPLET [Suspect]
     Indication: ARTHRITIS
     Dosage: 2 DF, TWICE DAILY
     Route: 048
     Dates: start: 201201
  2. HIGH BLOOD PRESSURE MEDICATION [Concomitant]
  3. INSULIN [Concomitant]

REACTIONS (1)
  - Incorrect drug administration duration [Not Recovered/Not Resolved]
